FAERS Safety Report 22399343 (Version 1)
Quarter: 2023Q2

REPORT INFORMATION
  Report Type: Spontaneous
  Country: CN (occurrence: CN)
  Receive Date: 20230602
  Receipt Date: 20230602
  Transmission Date: 20230721
  Serious: Yes (Other)
  Sender: FDA-Public Use
  Company Number: CN-SUN PHARMACEUTICAL INDUSTRIES LTD-2023R1-389893

PATIENT
  Age: 51 Year
  Sex: Male

DRUGS (3)
  1. OXYCODONE [Interacting]
     Active Substance: OXYCODONE
     Indication: Product used for unknown indication
     Dosage: 10 MILLIGRAM, QD
     Route: 048
  2. PREGABALIN [Interacting]
     Active Substance: PREGABALIN
     Indication: Inadequate analgesia
     Dosage: 75 MILLIGRAM, BID
     Route: 065
  3. ACETAMINOPHEN\OXYCODONE HYDROCHLORIDE [Suspect]
     Active Substance: ACETAMINOPHEN\OXYCODONE HYDROCHLORIDE
     Indication: Sinusitis
     Dosage: UNK UNK, TID
     Route: 048

REACTIONS (6)
  - Drug interaction [Unknown]
  - Delirium [Recovering/Resolving]
  - Irritability [Recovering/Resolving]
  - Seizure [Recovering/Resolving]
  - Disorientation [Recovering/Resolving]
  - Cognitive disorder [Recovering/Resolving]
